FAERS Safety Report 5487207-X (Version None)
Quarter: 2007Q3

REPORT INFORMATION
  Report Type: 
  Country: None (occurrence: None)
  Receive Date: 20070925
  Receipt Date: 20070620
  Transmission Date: 20080115
  Serious: No
  Sender: FDA-Public Use
  Company Number: 2007US001444

PATIENT
  Age: 83 Year
  Sex: Female

DRUGS (1)
  1. VESICARE [Suspect]
     Indication: DRUG USE FOR UNKNOWN INDICATION
     Dosage: 5 MG, UID/QD

REACTIONS (6)
  - CONSTIPATION [None]
  - DYSGEUSIA [None]
  - FLATULENCE [None]
  - MUSCLE SPASMS [None]
  - NAUSEA [None]
  - VOMITING [None]
